FAERS Safety Report 8548761-4 (Version None)
Quarter: 2012Q3

REPORT INFORMATION
  Report Type: 
  Country: None (occurrence: None)
  Receive Date: 20120717
  Receipt Date: 20120703
  Transmission Date: 20120928
  Serious: Yes (Other)
  Sender: FDA-Public Use
  Company Number: ENT 2012-0095

PATIENT
  Sex: Male

DRUGS (2)
  1. ANTI-PARKINSON DRUGS [Concomitant]
  2. COMTAN [Suspect]
     Indication: PARKINSON'S DISEASE
     Dosage: ORAL
     Route: 048

REACTIONS (2)
  - BLOOD CREATINE PHOSPHOKINASE INCREASED [None]
  - PAIN IN EXTREMITY [None]
